FAERS Safety Report 25276544 (Version 1)
Quarter: 2025Q2

REPORT INFORMATION
  Report Type: Spontaneous
  Country: US (occurrence: US)
  Receive Date: 20250507
  Receipt Date: 20250507
  Transmission Date: 20250716
  Serious: Yes (Hospitalization)
  Sender: Unknown Manufacturer
  Company Number: US-MLMSERVICE-20250331-PI462084-00123-2

PATIENT
  Age: 53 Year
  Sex: Female

DRUGS (20)
  1. DOCETAXEL [Suspect]
     Active Substance: DOCETAXEL
     Indication: Hormone receptor positive breast cancer
  2. DOCETAXEL [Suspect]
     Active Substance: DOCETAXEL
     Indication: Hormone receptor positive breast cancer
  3. DOCETAXEL [Suspect]
     Active Substance: DOCETAXEL
     Indication: HER2 positive breast cancer
  4. DOCETAXEL [Suspect]
     Active Substance: DOCETAXEL
     Indication: Invasive ductal breast carcinoma
  5. CARBOPLATIN [Interacting]
     Active Substance: CARBOPLATIN
     Indication: Hormone receptor positive breast cancer
     Dosage: AREA UNDER THE CURVE (AUC) OF 6
  6. CARBOPLATIN [Interacting]
     Active Substance: CARBOPLATIN
     Indication: Hormone receptor positive breast cancer
  7. CARBOPLATIN [Interacting]
     Active Substance: CARBOPLATIN
     Indication: HER2 positive breast cancer
  8. CARBOPLATIN [Interacting]
     Active Substance: CARBOPLATIN
     Indication: Invasive ductal breast carcinoma
  9. TRASTUZUMAB [Interacting]
     Active Substance: TRASTUZUMAB
     Indication: Hormone receptor positive breast cancer
     Dosage: LOADING DOSE
  10. TRASTUZUMAB [Interacting]
     Active Substance: TRASTUZUMAB
     Indication: Hormone receptor positive breast cancer
  11. TRASTUZUMAB [Interacting]
     Active Substance: TRASTUZUMAB
     Indication: HER2 positive breast cancer
  12. TRASTUZUMAB [Interacting]
     Active Substance: TRASTUZUMAB
     Indication: Invasive ductal breast carcinoma
  13. PERTUZUMAB [Interacting]
     Active Substance: PERTUZUMAB
     Indication: Hormone receptor positive breast cancer
     Dosage: LOADING DOSE
  14. PERTUZUMAB [Interacting]
     Active Substance: PERTUZUMAB
     Indication: HER2 positive breast cancer
  15. PERTUZUMAB [Interacting]
     Active Substance: PERTUZUMAB
     Indication: Hormone receptor positive breast cancer
  16. PERTUZUMAB [Interacting]
     Active Substance: PERTUZUMAB
     Indication: Invasive ductal breast carcinoma
  17. APREPITANT [Concomitant]
     Active Substance: APREPITANT
     Indication: Premedication
  18. DEXAMETHASONE [Concomitant]
     Active Substance: DEXAMETHASONE
     Indication: Premedication
  19. PALONSETRON [Concomitant]
     Indication: Premedication
  20. PEGFILGRASTIM [Concomitant]
     Active Substance: PEGFILGRASTIM
     Indication: Product used for unknown indication

REACTIONS (2)
  - Cystitis haemorrhagic [Recovered/Resolved]
  - Drug interaction [Recovered/Resolved]
